FAERS Safety Report 10681346 (Version 2)
Quarter: 2015Q1

REPORT INFORMATION
  Report Type: Spontaneous
  Country: US (occurrence: US)
  Receive Date: 20141230
  Receipt Date: 20150116
  Transmission Date: 20150720
  Serious: No
  Sender: FDA-Public Use
  Company Number: US-AMGEN-USASP2014101017

PATIENT
  Age: 71 Year
  Sex: Female
  Weight: 61.68 kg

DRUGS (13)
  1. OCUVITE [Concomitant]
     Active Substance: VITAMINS
     Dosage: UNK, 150 MG-30 UNIT-5 MG-150 MG
  2. FOLIC ACID. [Concomitant]
     Active Substance: FOLIC ACID
     Dosage: 1 MG, UNK, EVERYDAY
     Route: 048
  3. LEVSIN [Concomitant]
     Active Substance: HYOSCYAMINE SULFATE
     Dosage: 0.125 MG, UNK, TAKE 1 TABLET 3 TIMES EVERYDAY AS NEEDED
     Route: 048
  4. DYAZIDE [Concomitant]
     Active Substance: HYDROCHLOROTHIAZIDE\TRIAMTERENE
     Dosage: 37.5 MG-25 MG, TAKE 1 CAPSULE 2 TIMES EVERYDAY
     Route: 048
  5. VITAMIN B COMPLEX [Concomitant]
     Active Substance: CYANOCOBALAMIN\DEXPANTHENOL\NIACINAMIDE\PYRIDOXINE HYDROCHLORIDE\RIBOFLAVIN 5^-PHOSPHATE SODIUM\THIAMINE HYDROCHLORIDE\VITAMIN B COMPLEX
     Dosage: UNK
  6. VITAMIN D3 [Concomitant]
     Active Substance: CHOLECALCIFEROL
     Dosage: 1000 UNIT, UNK, EVERYDAY
     Route: 048
  7. MELATONIN [Concomitant]
     Active Substance: MELATONIN
     Dosage: 10 MG, UNK
  8. ZANAFLEX [Concomitant]
     Active Substance: TIZANIDINE HYDROCHLORIDE
     Dosage: 4 MG, TID
     Route: 048
  9. TENORMIN [Concomitant]
     Active Substance: ATENOLOL
     Dosage: 50 MG, UNK, EVERYDAY
     Route: 048
  10. IMODIUM A-D [Concomitant]
     Active Substance: LOPERAMIDE HYDROCHLORIDE
     Dosage: UNK, TAKE 2 TABLET AFTER 1ST LOOSE STOOL AND 1 TABLET (2MG) AFTER EACH NEXT BOWEL MOVEMENT
     Route: 048
  11. ENBREL [Suspect]
     Active Substance: ETANERCEPT
     Indication: RHEUMATOID ARTHRITIS
     Dosage: 50 MG, QWK
     Route: 058
     Dates: start: 20141028
  12. METHOTREXATE [Concomitant]
     Active Substance: METHOTREXATE
     Dosage: 2.5 MG, QWK, 8 TABLET EVERY WEEK
     Dates: start: 201408
  13. CHOLESTYRAMINE LIGHT [Concomitant]
     Active Substance: CHOLESTYRAMINE
     Dosage: UNK UNK, BID, 1 SCOOP
     Route: 048

REACTIONS (6)
  - Pain in extremity [Recovered/Resolved]
  - Neuropathy peripheral [Not Recovered/Not Resolved]
  - Contusion [Recovered/Resolved]
  - Diarrhoea [Recovered/Resolved]
  - Peripheral swelling [Not Recovered/Not Resolved]
  - Oedema peripheral [Not Recovered/Not Resolved]

NARRATIVE: CASE EVENT DATE: 2014
